FAERS Safety Report 10501571 (Version 1)
Quarter: 2014Q4

REPORT INFORMATION
  Report Type: Spontaneous
  Country: US (occurrence: None)
  Receive Date: 20141006
  Receipt Date: 20141006
  Transmission Date: 20150528
  Serious: No
  Sender: FDA-Public Use
  Company Number: None

PATIENT
  Age: 22 Year
  Sex: Female
  Weight: 90.72 kg

DRUGS (1)
  1. NEXPLANON [Suspect]
     Active Substance: ETONOGESTREL

REACTIONS (11)
  - Seborrhoea [None]
  - Migraine [None]
  - Weight increased [None]
  - Depression [None]
  - Abdominal distension [None]
  - Hair growth abnormal [None]
  - Breast tenderness [None]
  - Amenorrhoea [None]
  - Acne [None]
  - Breast enlargement [None]
  - Abdominal pain [None]
